FAERS Safety Report 18016555 (Version 1)
Quarter: 2020Q3

REPORT INFORMATION
  Report Type: Spontaneous
  Country: IT (occurrence: IT)
  Receive Date: 20200713
  Receipt Date: 20200713
  Transmission Date: 20201103
  Serious: Yes (Other)
  Sender: FDA-Public Use
  Company Number: IT-SA-2020SA177348

PATIENT

DRUGS (16)
  1. DOCETAXEL. [Suspect]
     Active Substance: DOCETAXEL
     Indication: BREAST NEOPLASM
     Dosage: 148.8 MG, QCY
     Dates: start: 20110714, end: 20110825
  2. PACLITAXEL. [Suspect]
     Active Substance: PACLITAXEL
     Indication: BREAST NEOPLASM
     Dosage: 117 MG, QCY
     Dates: start: 20190823, end: 20200117
  3. RANITIDINE. [Concomitant]
     Active Substance: RANITIDINE
  4. METHYLPREDNISOLONE. [Concomitant]
     Active Substance: METHYLPREDNISOLONE
  5. TRASTUZUMAB. [Suspect]
     Active Substance: TRASTUZUMAB
     Indication: BREAST NEOPLASM
     Dosage: 720 MG, QCY
     Dates: start: 20110915, end: 20200214
  6. GRANISETRON [Concomitant]
     Active Substance: GRANISETRON
  7. CYCLOPHOSPHAMIDE. [Suspect]
     Active Substance: CYCLOPHOSPHAMIDE
     Indication: BREAST NEOPLASM
     Dosage: 725 MG, QCY
     Dates: start: 20110505, end: 20110623
  8. TROPISETRON [Concomitant]
     Active Substance: TROPISETRON
  9. EPIRUBICIN [Suspect]
     Active Substance: EPIRUBICIN
     Indication: BREAST NEOPLASM
     Dosage: 145 MG, QCY
     Dates: start: 20110505, end: 20110823
  10. PERTUZUMAB. [Suspect]
     Active Substance: PERTUZUMAB
     Indication: BREAST NEOPLASM
     Dosage: 840 MG, QCY
     Dates: start: 20190823, end: 20200214
  11. CHLORPHENAMINE [Concomitant]
     Active Substance: CHLORPHENIRAMINE MALEATE
  12. APREPITANT. [Concomitant]
     Active Substance: APREPITANT
  13. PALONOSETRON HYDROCHLORIDE. [Concomitant]
     Active Substance: PALONOSETRON HYDROCHLORIDE
  14. DEXAMETHASONE. [Concomitant]
     Active Substance: DEXAMETHASONE
  15. FLUOROURACIL. [Suspect]
     Active Substance: FLUOROURACIL
     Indication: BREAST NEOPLASM
     Dosage: 725 MG, QCY
     Dates: start: 20110505, end: 20110623
  16. LORATADINE. [Concomitant]
     Active Substance: LORATADINE

REACTIONS (1)
  - Ejection fraction decreased [Unknown]

NARRATIVE: CASE EVENT DATE: 20200220
